FAERS Safety Report 6172961-4 (Version None)
Quarter: 2009Q2

REPORT INFORMATION
  Report Type: 
  Country: None (occurrence: None)
  Receive Date: 20090430
  Receipt Date: 20090422
  Transmission Date: 20091009
  Serious: Yes (Other)
  Sender: FDA-Public Use
  Company Number: AU-AVENTIS-200912221EU

PATIENT

DRUGS (1)
  1. CLEXANE [Suspect]
     Indication: PULMONARY EMBOLISM
     Dosage: DOSE: UNK
     Dates: start: 20090415

REACTIONS (2)
  - LIVER INJURY [None]
  - TRANSAMINASES INCREASED [None]
